FAERS Safety Report 4852773-1 (Version None)
Quarter: 2005Q4

REPORT INFORMATION
  Report Type: 
  Country: None (occurrence: None)
  Receive Date: 20051125
  Receipt Date: 20050618
  Transmission Date: 20060501
  Serious: Yes (Other)
  Sender: FDA-Public Use
  Company Number: 2005BH001547

PATIENT
  Age: 47 Year
  Sex: Female

DRUGS (4)
  1. DIANEAL [Suspect]
     Dosage: 6 L; IP
     Route: 033
  2. INSULIN [Concomitant]
  3. NPH INSULIN [Concomitant]
  4. PERCOCET [Concomitant]

REACTIONS (2)
  - BACTERIAL INFECTION [None]
  - PERITONITIS BACTERIAL [None]
